FAERS Safety Report 7405669-5 (Version None)
Quarter: 2011Q2

REPORT INFORMATION
  Report Type: 
  Country: None (occurrence: None)
  Receive Date: 20110411
  Receipt Date: 20110404
  Transmission Date: 20111010
  Serious: Yes (Death, Hospitalization)
  Sender: FDA-Public Use
  Company Number: US-ROCHE-726868

PATIENT
  Age: 71 Year
  Sex: Male
  Weight: 60 kg

DRUGS (12)
  1. ACETYLSALICYLIC ACID SRT [Concomitant]
     Dates: start: 20090201, end: 20100517
  2. PRILOSEC [Concomitant]
     Dates: start: 20081018
  3. MYCOPHENOLATE MOFETIL [Suspect]
     Route: 048
     Dates: start: 20081014
  4. PREDNISONE [Suspect]
     Indication: IMMUNOSUPPRESSION
     Route: 048
     Dates: start: 20081118, end: 20100701
  5. TAMSULOSIN HYDROCHLORIDE [Concomitant]
     Dates: start: 20081013
  6. ZOCOR [Concomitant]
     Dates: start: 20090204
  7. NEPHRO-VITE [Concomitant]
     Dates: start: 20081018
  8. FOLIC ACID [Concomitant]
     Dosage: DRUG: FOLATE
     Dates: start: 20081018
  9. MYCOPHENOLATE MOFETIL [Suspect]
     Indication: IMMUNOSUPPRESSION
     Route: 048
     Dates: start: 20090929, end: 20100717
  10. ALENDRONATE SODIUM [Concomitant]
     Dates: start: 20090215
  11. CITRACAL + D [Concomitant]
  12. METOPROLOL [Concomitant]
     Dates: start: 20000201

REACTIONS (2)
  - DIFFUSE LARGE B-CELL LYMPHOMA [None]
  - BRAIN MASS [None]
